FAERS Safety Report 9331966 (Version 1)
Quarter: 2013Q2

REPORT INFORMATION
  Report Type: Spontaneous
  Country: US (occurrence: None)
  Receive Date: 20130603
  Receipt Date: 20130603
  Transmission Date: 20140414
  Serious: Yes (Other)
  Sender: FDA-Public Use
  Company Number: 1717783

PATIENT
  Age: 76 Year
  Sex: Male
  Weight: 67.27 kg

DRUGS (1)
  1. CEFAZOLIN [Suspect]
     Indication: UPPER RESPIRATORY TRACT INFECTION
     Route: 030
     Dates: start: 20130503, end: 20130506

REACTIONS (4)
  - Sneezing [None]
  - Chest discomfort [None]
  - Cough [None]
  - Erythema [None]
